FAERS Safety Report 11321701 (Version 4)
Quarter: 2015Q4

REPORT INFORMATION
  Report Type: Spontaneous
  Country: US (occurrence: US)
  Receive Date: 20150729
  Receipt Date: 20151016
  Transmission Date: 20160304
  Serious: Yes (Other)
  Sender: FDA-Public Use
  Company Number: US-009507513-1507USA010799

PATIENT
  Age: 54 Year
  Sex: Female
  Weight: 83 kg

DRUGS (10)
  1. TEMODAR [Suspect]
     Active Substance: TEMOZOLOMIDE
     Indication: ANAPLASTIC ASTROCYTOMA
     Dosage: CYCLICAL: 2 CAPSULES PER DAY, 5 DAYS PER MONTH (10 CAPSULES DISPENSED)
     Route: 048
     Dates: start: 20150309
  2. TEMODAR [Suspect]
     Active Substance: TEMOZOLOMIDE
     Dosage: FIVE DAYS WEEKLY,  280 MG
     Route: 048
     Dates: start: 20150507, end: 2015
  3. TEMODAR [Suspect]
     Active Substance: TEMOZOLOMIDE
     Dosage: 140 MG, QD TAKE WITH 5 MG CAPSULE FOR 42 DAYS
     Route: 048
     Dates: start: 20150309
  4. TEMODAR [Suspect]
     Active Substance: TEMOZOLOMIDE
     Indication: MALIGNANT OLIGODENDROGLIOMA
     Dosage: UNK, CYCLICAL
     Route: 048
     Dates: start: 200706, end: 200809
  5. TEMODAR [Suspect]
     Active Substance: TEMOZOLOMIDE
     Dosage: 280 MG, QD
     Route: 048
     Dates: start: 20150710, end: 2015
  6. KEPPRA [Concomitant]
     Active Substance: LEVETIRACETAM
     Indication: SEIZURE
     Dosage: 500 MG, Q8H
     Route: 048
  7. TEMODAR [Suspect]
     Active Substance: TEMOZOLOMIDE
     Dosage: 5 MG, QD TAKE WITH 140MG CAPSULE FOR 42 DAYS
     Route: 048
     Dates: start: 20150309
  8. HYDROCODONE/APAP [Concomitant]
     Active Substance: ACETAMINOPHEN\HYDROCODONE BITARTRATE
     Indication: PAIN
     Dosage: 10 MG/325   1 DF
     Route: 048
  9. TEMODAR [Suspect]
     Active Substance: TEMOZOLOMIDE
     Dosage: 280 MG, QD
     Route: 048
     Dates: start: 20150705, end: 20150708
  10. PERCOCET [Concomitant]
     Active Substance: ACETAMINOPHEN\OXYCODONE HYDROCHLORIDE
     Indication: PAIN
     Dosage: UNK UNK, UNKNOWN
     Route: 065

REACTIONS (19)
  - Eye irritation [Unknown]
  - Dysphagia [Recovered/Resolved]
  - Hypoaesthesia [Unknown]
  - Headache [Unknown]
  - Seizure [Unknown]
  - Nausea [Recovering/Resolving]
  - Drug dose omission [Unknown]
  - Retinal detachment [Unknown]
  - Recurrent cancer [Unknown]
  - Back pain [Unknown]
  - Abdominal pain upper [Recovering/Resolving]
  - Retinal detachment [Unknown]
  - Anaplastic astrocytoma [Unknown]
  - Aphasia [Recovering/Resolving]
  - Road traffic accident [Unknown]
  - Product odour abnormal [Unknown]
  - Retinal detachment [Unknown]
  - Hypercholesterolaemia [Unknown]
  - Sensory loss [Unknown]

NARRATIVE: CASE EVENT DATE: 2007
